FAERS Safety Report 15736063 (Version 1)
Quarter: 2018Q4

REPORT INFORMATION
  Report Type: Spontaneous
  Country: GB (occurrence: GB)
  Receive Date: 20181218
  Receipt Date: 20181218
  Transmission Date: 20190205
  Serious: Yes (Hospitalization)
  Sender: FDA-Public Use
  Company Number: GB-BAYER-2018-234715

PATIENT
  Age: 35 Year
  Sex: Male
  Weight: 62 kg

DRUGS (1)
  1. ASPIRIN. [Suspect]
     Active Substance: ASPIRIN
     Indication: HEADACHE
     Dosage: 500 MG, QD
     Route: 048
     Dates: start: 20181111, end: 20181121

REACTIONS (1)
  - Rhinalgia [Recovering/Resolving]

NARRATIVE: CASE EVENT DATE: 20181112
